FAERS Safety Report 5978049-7 (Version None)
Quarter: 2008Q4

REPORT INFORMATION
  Report Type: 
  Country: None (occurrence: None)
  Receive Date: 20081126
  Receipt Date: 20081110
  Transmission Date: 20090506
  Serious: Yes (Disabling)
  Sender: FDA-Public Use
  Company Number: ENTC2007-0155

PATIENT
  Age: 67 Year
  Sex: Male

DRUGS (9)
  1. STALEVO 100 [Suspect]
     Indication: PARKINSON'S DISEASE
     Dosage: 900 MG
     Route: 048
     Dates: start: 20060322
  2. MADOPAR DISPERSIBLE [Concomitant]
  3. TOLTERODINE [Concomitant]
  4. AMANTADINE HCL [Concomitant]
  5. QUETIAPINE FUMARATE [Concomitant]
  6. MOVICOL [Concomitant]
  7. VENLAFAXINE HCL [Concomitant]
  8. SIMVASTATIN [Concomitant]
  9. ATROPINE DROPS [Concomitant]

REACTIONS (5)
  - DRUG INEFFECTIVE [None]
  - HYPERHIDROSIS [None]
  - IMMOBILE [None]
  - PAIN [None]
  - PRODUCT QUALITY ISSUE [None]
